FAERS Safety Report 6338839-8 (Version None)
Quarter: 2009Q3

REPORT INFORMATION
  Report Type: 
  Country: None (occurrence: None)
  Receive Date: 20090828
  Receipt Date: 20090609
  Transmission Date: 20100115
  Serious: Yes (Hospitalization)
  Sender: FDA-Public Use
  Company Number: 1-18775513

PATIENT
  Sex: Female

DRUGS (1)
  1. QUALAQUIN [Suspect]
     Indication: MUSCLE SPASMS
     Dosage: ORAL
     Route: 048
     Dates: start: 20020101, end: 20070101

REACTIONS (3)
  - OFF LABEL USE [None]
  - RENAL FAILURE [None]
  - UNEVALUABLE EVENT [None]
